FAERS Safety Report 8839723 (Version 1)
Quarter: 2012Q4

REPORT INFORMATION
  Report Type: Spontaneous
  Country: US (occurrence: None)
  Receive Date: 20121012
  Receipt Date: 20121012
  Transmission Date: 20130627
  Serious: Yes (Disabling)
  Sender: FDA-Public Use
  Company Number: None

PATIENT
  Sex: Female
  Weight: 52.16 kg

DRUGS (2)
  1. METOCLOPRAMIDE [Suspect]
     Indication: GASTROPARESIS
     Route: 048
     Dates: start: 1990, end: 2012
  2. METOCLOPRAMIDE [Suspect]
     Indication: GASTROPARESIS
     Route: 048

REACTIONS (3)
  - Grimacing [None]
  - Dyskinesia [None]
  - Eyelid disorder [None]
